FAERS Safety Report 22595587 (Version 2)
Quarter: 2024Q3

REPORT INFORMATION
  Report Type: Report from Study
  Country: US (occurrence: US)
  Receive Date: 20230613
  Receipt Date: 20240807
  Transmission Date: 20241016
  Serious: Yes (Other)
  Sender: NOVARTIS
  Company Number: US-002147023-NVSC2023US131410

PATIENT
  Sex: Male

DRUGS (1)
  1. TRILEPTAL [Suspect]
     Active Substance: OXCARBAZEPINE
     Indication: Product used for unknown indication
     Dosage: UNK
     Route: 065

REACTIONS (8)
  - Schizophrenia [Recovered/Resolved with Sequelae]
  - Seizure [Unknown]
  - Epilepsy [Unknown]
  - Seizure cluster [Unknown]
  - Schizophrenia [Unknown]
  - Dissociative identity disorder [Unknown]
  - Mental disorder [Unknown]
  - Abnormal behaviour [Unknown]
